FAERS Safety Report 21643460 (Version 1)
Quarter: 2022Q4

REPORT INFORMATION
  Report Type: Report from Study
  Country: GB (occurrence: GB)
  Receive Date: 20221125
  Receipt Date: 20221125
  Transmission Date: 20230113
  Serious: Yes (Other)
  Sender: FDA-Public Use
  Company Number: GB-ABBVIE-4212983

PATIENT
  Age: 33 Year
  Sex: Female

DRUGS (2)
  1. SKYRIZI [Suspect]
     Active Substance: RISANKIZUMAB-RZAA
     Indication: Psoriasis
     Dosage: FORM STRENGTH: 150 MILLIGRAM
     Route: 058
     Dates: end: 2022
  2. SKYRIZI [Suspect]
     Active Substance: RISANKIZUMAB-RZAA
     Dosage: FORM STRENGTH: 150 MILLIGRAM
     Route: 058
     Dates: start: 20220930

REACTIONS (5)
  - Surgery [Unknown]
  - Dyspnoea [Unknown]
  - Alopecia [Unknown]
  - Chest discomfort [Unknown]
  - Fatigue [Unknown]

NARRATIVE: CASE EVENT DATE: 20220801
